FAERS Safety Report 10308469 (Version 2)
Quarter: 2014Q3

REPORT INFORMATION
  Report Type: Spontaneous
  Country: DE (occurrence: DE)
  Receive Date: 20140716
  Receipt Date: 20140819
  Transmission Date: 20150326
  Serious: Yes (Other)
  Sender: FDA-Public Use
  Company Number: PHHY2014DE086446

PATIENT
  Sex: Female
  Weight: 100 kg

DRUGS (5)
  1. GILENYA [Suspect]
     Active Substance: FINGOLIMOD HYDROCHLORIDE
     Dosage: 0.5 MG, DAILY
     Route: 048
  2. ADVACAL//CALCIUM [Concomitant]
     Indication: MULTIPLE SCLEROSIS
     Dosage: 950 MG, DAILY
     Route: 048
  3. GILENYA [Suspect]
     Active Substance: FINGOLIMOD HYDROCHLORIDE
     Dosage: 0.5 MG, DAILY
     Route: 048
     Dates: start: 20120904
  4. OMEGA-3                            /01168901/ [Concomitant]
     Indication: MULTIPLE SCLEROSIS
     Dosage: 2 MG, DAILY
     Route: 048
  5. VITAMIN D [Concomitant]
     Active Substance: CHOLECALCIFEROL
     Indication: MULTIPLE SCLEROSIS
     Dosage: 50000 UKN X2 WEEK
     Route: 048

REACTIONS (17)
  - Fungal infection [Not Recovered/Not Resolved]
  - Product quality issue [Recovered/Resolved]
  - Productive cough [Recovered/Resolved]
  - Weight increased [Not Recovered/Not Resolved]
  - Birth mark [Not Recovered/Not Resolved]
  - Blood disorder [Not Recovered/Not Resolved]
  - Gait disturbance [Not Recovered/Not Resolved]
  - Palpitations [Not Recovered/Not Resolved]
  - Cardiac disorder [Recovered/Resolved]
  - Hypoaesthesia [Not Recovered/Not Resolved]
  - Fall [Recovered/Resolved]
  - Dyspnoea [Not Recovered/Not Resolved]
  - Pain in extremity [Recovered/Resolved]
  - Pain [Not Recovered/Not Resolved]
  - Heart rate increased [Recovered/Resolved]
  - Nasal congestion [Recovered/Resolved]
  - Nasopharyngitis [Recovered/Resolved]

NARRATIVE: CASE EVENT DATE: 201209
